FAERS Safety Report 9200481 (Version 2)
Quarter: 2013Q2

REPORT INFORMATION
  Report Type: Report from Study
  Country: JP (occurrence: JP)
  Receive Date: 20130329
  Receipt Date: 20130401
  Transmission Date: 20140414
  Serious: Yes (Death)
  Sender: FDA-Public Use
  Company Number: JP-ASTRAZENECA-2013SE19866

PATIENT
  Age: 80 Year
  Sex: Male
  Weight: 38 kg

DRUGS (5)
  1. SYMBICORT TURBUHALER [Suspect]
     Indication: ASTHMA
     Dosage: 4 DF BID
     Route: 055
     Dates: start: 20130306, end: 20130313
  2. SYMBICORT TURBUHALER [Suspect]
     Indication: ASTHMA
     Dosage: 4 DF DAILY
     Route: 055
     Dates: start: 20130314
  3. SYMBICORT TURBUHALER [Suspect]
     Indication: ASTHMA
     Dosage: 60 DOSES, AS REQUIRED
     Route: 055
     Dates: start: 20130306
  4. SPIRIVA [Concomitant]
     Indication: CHRONIC OBSTRUCTIVE PULMONARY DISEASE
     Route: 055
  5. TAKEPRON [Concomitant]
     Indication: PROPHYLAXIS
     Route: 048

REACTIONS (1)
  - Hypercapnia [Fatal]
